FAERS Safety Report 8793218 (Version 3)
Quarter: 2015Q1

REPORT INFORMATION
  Report Type: Report from Study
  Country: US (occurrence: US)
  Receive Date: 20120918
  Receipt Date: 20150312
  Transmission Date: 20150721
  Serious: Yes (Death)
  Sender: FDA-Public Use
  Company Number: US-ROCHE-1123496

PATIENT
  Sex: Male

DRUGS (7)
  1. AVASTIN [Suspect]
     Active Substance: BEVACIZUMAB
     Indication: METASTASES TO LIVER
  2. AVASTIN [Suspect]
     Active Substance: BEVACIZUMAB
     Indication: METASTASES TO PERITONEUM
  3. NEULASTA [Concomitant]
     Active Substance: PEGFILGRASTIM
     Route: 065
  4. AVASTIN [Suspect]
     Active Substance: BEVACIZUMAB
     Indication: METASTASES TO BONE
  5. AVASTIN [Suspect]
     Active Substance: BEVACIZUMAB
     Indication: NEOPLASM MALIGNANT
     Dosage: 02/JAN/2007, 23/JAN/2007, 13/FEB/2007
     Route: 042
     Dates: start: 20061212
  6. ZOMETA [Concomitant]
     Active Substance: ZOLEDRONIC ACID
  7. ARANESP [Concomitant]
     Active Substance: DARBEPOETIN ALFA

REACTIONS (8)
  - Flank pain [Unknown]
  - Skin exfoliation [Unknown]
  - Carbohydrate antigen 125 increased [Unknown]
  - Epistaxis [Unknown]
  - Dry skin [Unknown]
  - Death [Fatal]
  - Abdominal pain upper [Unknown]
  - Lethargy [Unknown]
